FAERS Safety Report 7097838 (Version 3)
Quarter: 2013Q1

REPORT INFORMATION
  Report Type: Report from Study
  Country: DE (occurrence: DE)
  Receive Date: 20090827
  Receipt Date: 20130326
  Transmission Date: 20140127
  Serious: Yes (Hospitalization)
  Sender: FDA-Public Use
  Company Number: DE-BIOGENIDEC-2009BI026331

PATIENT
  Age: 55 Year
  Sex: Male

DRUGS (7)
  1. TYSABRI [Suspect]
     Indication: RELAPSING-REMITTING MULTIPLE SCLEROSIS
     Route: 042
     Dates: start: 20080305
  2. GABAPENTIN [Concomitant]
  3. SIRDALUD [Concomitant]
  4. BACLOFEN [Concomitant]
  5. DETRUSIOL [Concomitant]
  6. TILICOMP [Concomitant]
  7. TAMSULOSIN [Concomitant]

REACTIONS (1)
  - Deep vein thrombosis [Not Recovered/Not Resolved]
